FAERS Safety Report 18870076 (Version 1)
Quarter: 2021Q1

REPORT INFORMATION
  Report Type: Spontaneous
  Country: US (occurrence: US)
  Receive Date: 20210210
  Receipt Date: 20210210
  Transmission Date: 20210420
  Serious: No
  Sender: FDA-Public Use
  Company Number: US-JNJFOC-20210200664

PATIENT
  Sex: Male

DRUGS (4)
  1. TYLENOL [Suspect]
     Active Substance: ACETAMINOPHEN
     Indication: AGEUSIA
     Route: 065
  2. TYLENOL [Suspect]
     Active Substance: ACETAMINOPHEN
     Indication: ANOSMIA
  3. TYLENOL [Suspect]
     Active Substance: ACETAMINOPHEN
     Indication: NASAL CONGESTION
  4. TYLENOL [Suspect]
     Active Substance: ACETAMINOPHEN
     Indication: HEADACHE

REACTIONS (1)
  - Product use in unapproved indication [Unknown]
